FAERS Safety Report 10716944 (Version 2)
Quarter: 2015Q2

REPORT INFORMATION
  Report Type: Spontaneous
  Country: JP (occurrence: JP)
  Receive Date: 20150116
  Receipt Date: 20150410
  Transmission Date: 20150821
  Serious: Yes (Hospitalization, Other)
  Sender: FDA-Public Use
  Company Number: JP-SA-2015SA004330

PATIENT
  Age: 45 Year
  Sex: Male
  Weight: 52 kg

DRUGS (6)
  1. CAMPTO [Suspect]
     Active Substance: IRINOTECAN
     Indication: PANCREATIC CARCINOMA
     Route: 041
     Dates: start: 20140725, end: 20140725
  2. ELPLAT [Suspect]
     Active Substance: OXALIPLATIN
     Indication: PANCREATIC CARCINOMA
     Route: 041
     Dates: start: 20140725, end: 20140725
  3. CAMPTO [Suspect]
     Active Substance: IRINOTECAN
     Indication: PANCREATIC CARCINOMA
     Route: 041
     Dates: start: 20140903, end: 20140903
  4. ELPLAT [Suspect]
     Active Substance: OXALIPLATIN
     Indication: PANCREATIC CARCINOMA
     Route: 041
     Dates: start: 20140903, end: 20140903
  5. CALCIUM LEVOFOLINATE [Concomitant]
     Active Substance: LEVOLEUCOVORIN CALCIUM
     Dates: start: 20140725, end: 20140903
  6. 5-FU [Concomitant]
     Active Substance: FLUOROURACIL
     Dates: start: 20140725, end: 20140903

REACTIONS (11)
  - Diarrhoea [Unknown]
  - Fatigue [Unknown]
  - Neutrophil count decreased [Unknown]
  - Nausea [Unknown]
  - Peripheral sensory neuropathy [Unknown]
  - Platelet count decreased [Unknown]
  - White blood cell count decreased [Unknown]
  - Febrile neutropenia [Unknown]
  - Pyrexia [Unknown]
  - Akathisia [Recovered/Resolved]
  - Decreased appetite [Unknown]

NARRATIVE: CASE EVENT DATE: 20140726
